FAERS Safety Report 23883260 (Version 1)
Quarter: 2024Q2

REPORT INFORMATION
  Report Type: Spontaneous
  Country: CN (occurrence: CN)
  Receive Date: 20240522
  Receipt Date: 20240522
  Transmission Date: 20240716
  Serious: Yes (Other)
  Sender: FDA-Public Use
  Company Number: CN-QILU PHARMACEUTICAL (HAINAN) CO.  LTD.-QLH-000079-2024

PATIENT
  Age: 57 Year
  Sex: Female

DRUGS (4)
  1. IRINOTECAN HYDROCHLORIDE [Suspect]
     Active Substance: IRINOTECAN HYDROCHLORIDE
     Indication: Gallbladder cancer
     Dosage: 85 MG/M2 PER 120 MINUTES, REPEATED EVERY TWO WEEKS, AS A PART OF MFOLFIRINOX REGIMEN
     Route: 042
     Dates: start: 20190722, end: 2020
  2. OXALIPLATIN [Suspect]
     Active Substance: OXALIPLATIN
     Indication: Gallbladder cancer
     Dosage: 150 MG/M2 PER 90 MINUTES, REPEATED EVERY TWO WEEKS, AS A PART OF MFOLFIRINOX REGIMEN
     Route: 042
     Dates: start: 20190722, end: 2020
  3. LEUCOVORIN [Suspect]
     Active Substance: LEUCOVORIN\LEUCOVORIN CALCIUM
     Indication: Gallbladder cancer
     Dosage: 400 MG/M2 PER 2 HOURS, REPEATED EVERY TWO WEEKS, AS A PART OF MFOLFIRINOX REGIMEN
     Route: 042
     Dates: start: 20190722, end: 2020
  4. FLUOROURACIL [Suspect]
     Active Substance: FLUOROURACIL
     Indication: Gallbladder cancer
     Dosage: 2400 MG/M2 FOR 46 HOURS, REPEATED EVERY TWO WEEKS, AS A PART OF MFOLFIRINOX REGIMEN
     Route: 042
     Dates: start: 20190722, end: 2020

REACTIONS (7)
  - Neuropathy peripheral [Unknown]
  - Myelosuppression [Unknown]
  - Hypoaesthesia oral [Unknown]
  - Abdominal discomfort [Unknown]
  - Neutropenia [Unknown]
  - Diarrhoea [Recovered/Resolved]
  - Drug effective for unapproved indication [Unknown]

NARRATIVE: CASE EVENT DATE: 20190701
